FAERS Safety Report 23409233 (Version 1)
Quarter: 2024Q1

REPORT INFORMATION
  Report Type: Spontaneous
  Country: None (occurrence: ES)
  Receive Date: 20240117
  Receipt Date: 20240117
  Transmission Date: 20240410
  Serious: Yes (Other)
  Sender: FDA-Public Use
  Company Number: ES-B.Braun Medical Inc.-2151415

PATIENT
  Age: 63 Year
  Sex: Female

DRUGS (8)
  1. ACETAMINOPHEN [Suspect]
     Active Substance: ACETAMINOPHEN
     Dates: start: 20230803, end: 20230811
  2. ERYTHROMYCIN [Suspect]
     Active Substance: ERYTHROMYCIN
  3. LEVETIRACETAM [Suspect]
     Active Substance: LEVETIRACETAM
  4. METAMIZOL SODIUM [Suspect]
     Active Substance: METAMIZOL SODIUM
  5. MORPHINE [Suspect]
     Active Substance: MORPHINE
  6. NIMODIPINE [Suspect]
     Active Substance: NIMODIPINE
  7. OMEPRAZOLE [Suspect]
     Active Substance: OMEPRAZOLE
  8. SIMVASTATIN [Suspect]
     Active Substance: SIMVASTATIN

REACTIONS (2)
  - Cholestasis [None]
  - Hypertransaminasaemia [None]
